FAERS Safety Report 7989240-2 (Version None)
Quarter: 2011Q4

REPORT INFORMATION
  Report Type: 
  Country: None (occurrence: None)
  Receive Date: 20111216
  Receipt Date: 20111216
  Transmission Date: 20120403
  Serious: No
  Sender: FDA-Public Use
  Company Number: None

PATIENT
  Sex: Male
  Weight: 117.9352 kg

DRUGS (1)
  1. TESTOPEL [Suspect]
     Indication: PRODUCT QUALITY ISSUE
     Dosage: 75MG 9 PELLETS/3 MO IM
     Route: 030

REACTIONS (2)
  - TABLET PHYSICAL ISSUE [None]
  - PRODUCT FORMULATION ISSUE [None]
